FAERS Safety Report 24942989 (Version 1)
Quarter: 2025Q1

REPORT INFORMATION
  Report Type: Spontaneous
  Country: FR (occurrence: FR)
  Receive Date: 20250207
  Receipt Date: 20250207
  Transmission Date: 20250409
  Serious: Yes (Other)
  Sender: B BRAUN
  Company Number: FR-B.Braun Medical Inc.-2170670

PATIENT
  Age: 41 Year

DRUGS (4)
  1. ACETAMINOPHEN [Suspect]
     Active Substance: ACETAMINOPHEN
     Dates: start: 20240920, end: 20240920
  2. ALPRAZOLAM [Suspect]
     Active Substance: ALPRAZOLAM
  3. HEROIN [Suspect]
     Active Substance: DIAMORPHINE
  4. DEXTROMETHORPHAN [Suspect]
     Active Substance: DEXTROMETHORPHAN

REACTIONS (3)
  - Hallucination [Recovered/Resolved]
  - Off label use [Unknown]
  - Drug abuse [Not Recovered/Not Resolved]

NARRATIVE: CASE EVENT DATE: 20240920
